FAERS Safety Report 20160062 (Version 1)
Quarter: 2021Q4

REPORT INFORMATION
  Report Type: Spontaneous
  Country: US (occurrence: None)
  Receive Date: 20211207
  Receipt Date: 20211207
  Transmission Date: 20220304
  Serious: No
  Sender: FDA-Public Use
  Company Number: None

PATIENT
  Age: 44 Year
  Sex: Female

DRUGS (1)
  1. HUMIRA [Suspect]
     Active Substance: ADALIMUMAB
     Indication: Psoriatic arthropathy
     Dosage: OTHER QUANTITY : 40MG/0.4ML;?
     Route: 058
     Dates: start: 202110, end: 202111

REACTIONS (2)
  - Feeling abnormal [None]
  - Therapy cessation [None]

NARRATIVE: CASE EVENT DATE: 20211123
